FAERS Safety Report 11121822 (Version 1)
Quarter: 2015Q2

REPORT INFORMATION
  Report Type: Spontaneous
  Country: US (occurrence: None)
  Receive Date: 20150518
  Receipt Date: 20150518
  Transmission Date: 20150821
  Serious: No
  Sender: FDA-Public Use
  Company Number: None

PATIENT
  Age: 35 Year
  Sex: Male
  Weight: 86.18 kg

DRUGS (3)
  1. CLOZAPINE. [Concomitant]
     Active Substance: CLOZAPINE
  2. CLOZAPINE. [Suspect]
     Active Substance: CLOZAPINE
     Indication: PSYCHOTIC DISORDER
     Route: 048
     Dates: start: 2010
  3. CLOZAPINE. [Suspect]
     Active Substance: CLOZAPINE
     Indication: SCHIZOAFFECTIVE DISORDER
     Route: 048
     Dates: start: 2010

REACTIONS (18)
  - Dizziness [None]
  - Feeling abnormal [None]
  - Panic reaction [None]
  - Fear of death [None]
  - Gait disturbance [None]
  - Dyskinesia [None]
  - Choking sensation [None]
  - Insomnia [None]
  - Unevaluable event [None]
  - Drug ineffective [None]
  - Palpitations [None]
  - Tachycardia [None]
  - Dysphagia [None]
  - Fatigue [None]
  - Oral disorder [None]
  - Asthenia [None]
  - Visual impairment [None]
  - Night sweats [None]

NARRATIVE: CASE EVENT DATE: 20150429
